FAERS Safety Report 24217313 (Version 2)
Quarter: 2024Q3

REPORT INFORMATION
  Report Type: Report from Study
  Country: DE (occurrence: DE)
  Receive Date: 20240816
  Receipt Date: 20240827
  Transmission Date: 20241017
  Serious: Yes (Other)
  Sender: SANDOZ
  Company Number: DE-SZ09-PHHY2014DE051254

PATIENT
  Age: 34 Year
  Sex: Male

DRUGS (2)
  1. FILGRASTIM [Suspect]
     Active Substance: FILGRASTIM
     Indication: Stem cell donor
     Dosage: 3900 UG, IN TOTAL
     Route: 058
     Dates: start: 20121206
  2. FILGRASTIM [Suspect]
     Active Substance: FILGRASTIM
     Dosage: 3900 UG, IN TOTAL
     Route: 058
     Dates: end: 20121211

REACTIONS (10)
  - Pulmonary embolism [Recovered/Resolved]
  - Thrombocytopenia [Recovered/Resolved]
  - Chest pain [Recovered/Resolved]
  - Dyspnoea [Recovered/Resolved]
  - Cardiovascular disorder [Recovered/Resolved]
  - Bone pain [Recovered/Resolved]
  - Headache [Recovered/Resolved]
  - Splenomegaly [Not Recovered/Not Resolved]
  - Epistaxis [Recovered/Resolved]
  - Injection site haematoma [Recovered/Resolved]

NARRATIVE: CASE EVENT DATE: 20121206
